FAERS Safety Report 15624621 (Version 1)
Quarter: 2018Q4

REPORT INFORMATION
  Report Type: Spontaneous
  Country: CA (occurrence: CA)
  Receive Date: 20181116
  Receipt Date: 20181116
  Transmission Date: 20190205
  Serious: Yes (Death)
  Sender: FDA-Public Use
  Company Number: CA-JNJFOC-20181111010

PATIENT
  Age: 81 Year
  Sex: Female

DRUGS (3)
  1. MOTRIN [Suspect]
     Active Substance: IBUPROFEN
     Indication: PRODUCT USED FOR UNKNOWN INDICATION
     Route: 048
  2. MOTRIN [Suspect]
     Active Substance: IBUPROFEN
     Route: 048
  3. APO-PREDNISONE [Suspect]
     Active Substance: PREDNISONE
     Indication: PRODUCT USED FOR UNKNOWN INDICATION
     Route: 048

REACTIONS (4)
  - Peritonitis [Fatal]
  - Death [Fatal]
  - Drug interaction [Fatal]
  - Duodenal ulcer perforation [Fatal]
